FAERS Safety Report 20111693 (Version 1)
Quarter: 2021Q4

REPORT INFORMATION
  Report Type: Spontaneous
  Country: US (occurrence: US)
  Receive Date: 20211125
  Receipt Date: 20211125
  Transmission Date: 20220303
  Serious: No
  Sender: FDA-Public Use
  Company Number: US-drreddys-SPO/USA/21/0143982

PATIENT
  Age: 64 Year
  Sex: Male
  Weight: 67.5 kg

DRUGS (1)
  1. HABITROL [Suspect]
     Active Substance: NICOTINE
     Indication: Tobacco user
     Dosage: PATCH TO THE SHOULDER AND BACK OF THE ARM
     Route: 062

REACTIONS (1)
  - Product administration interrupted [Unknown]
